FAERS Safety Report 7950099-0 (Version None)
Quarter: 2011Q4

REPORT INFORMATION
  Report Type: 
  Country: None (occurrence: None)
  Receive Date: 20111130
  Receipt Date: 20111118
  Transmission Date: 20120403
  Serious: Yes (Hospitalization)
  Sender: FDA-Public Use
  Company Number: US-SANOFI-AVENTIS-2011SA076375

PATIENT
  Sex: Male

DRUGS (1)
  1. LANTUS [Suspect]
     Dosage: DOSE:1000 UNIT(S)
     Route: 058
     Dates: start: 20111115, end: 20111115

REACTIONS (2)
  - OVERDOSE [None]
  - HYPOGLYCAEMIA [None]
